FAERS Safety Report 19811118 (Version 1)
Quarter: 2021Q3

REPORT INFORMATION
  Report Type: Spontaneous
  Country: US (occurrence: US)
  Receive Date: 20210910
  Receipt Date: 20210910
  Transmission Date: 20211014
  Serious: No
  Sender: FDA-Public Use
  Company Number: US-ROCHE-2641301

PATIENT
  Sex: Male
  Weight: 69.92 kg

DRUGS (1)
  1. PEGASYS [Suspect]
     Active Substance: PEGINTERFERON ALFA-2A
     Indication: ESSENTIAL THROMBOCYTHAEMIA
     Dosage: PATIENT TAKES 1/2 OF THE VIAL FOR INJECTION ;ONGOING: YES, 180 MCG SINGLE DOSE VIAL
     Route: 058
     Dates: start: 20171205

REACTIONS (5)
  - Off label use [Unknown]
  - Accidental exposure to product [Unknown]
  - No adverse event [Unknown]
  - Intentional product use issue [Unknown]
  - Product complaint [Unknown]
